FAERS Safety Report 5227174-7 (Version None)
Quarter: 2007Q1

REPORT INFORMATION
  Report Type: 
  Country: None (occurrence: None)
  Receive Date: 20070202
  Receipt Date: 20070123
  Transmission Date: 20070707
  Serious: Yes (Death, Hospitalization, Disabling)
  Sender: FDA-Public Use
  Company Number: US-ROCHE-426618

PATIENT
  Age: 16 Year
  Sex: Female
  Weight: 68 kg

DRUGS (14)
  1. ACCUTANE [Suspect]
     Indication: ACNE
     Dosage: ACCUTANE 40 - 80 ALTERNATING.
     Route: 048
     Dates: start: 19930716
  2. ACCUTANE [Suspect]
     Route: 048
     Dates: start: 19930815, end: 19931130
  3. ASACOL [Concomitant]
  4. IMURAN [Concomitant]
  5. PREDNISONE [Concomitant]
     Indication: AUTOIMMUNE HEPATITIS
  6. PHENERGAN [Concomitant]
  7. CIPRO [Concomitant]
  8. TEGRETOL [Concomitant]
  9. DEMEROL [Concomitant]
  10. METHADONE HCL [Concomitant]
  11. CORTISOL [Concomitant]
  12. DOXYCYCLINE [Concomitant]
  13. MINOCIN [Concomitant]
     Route: 048
     Dates: end: 19930615
  14. RETIN-A [Concomitant]
     Dosage: DOSING REGIMEN REPORTED AS 0.025 %.
     Route: 061

REACTIONS (64)
  - AFFECTIVE DISORDER [None]
  - ANAEMIA [None]
  - ANAL FISTULA [None]
  - ANXIETY [None]
  - APPENDICITIS [None]
  - ARTHRITIS [None]
  - ASTHMA [None]
  - AUTOIMMUNE DISORDER [None]
  - AUTOIMMUNE HEPATITIS [None]
  - BRONCHITIS CHRONIC [None]
  - BUNDLE BRANCH BLOCK [None]
  - CELLULITIS [None]
  - CERVICAL DYSPLASIA [None]
  - CHOLECYSTITIS [None]
  - CHRONIC HEPATIC FAILURE [None]
  - COLITIS [None]
  - COLITIS ULCERATIVE [None]
  - CONVULSION [None]
  - CROHN'S DISEASE [None]
  - DEEP VEIN THROMBOSIS [None]
  - DEPRESSION [None]
  - DIABETES MELLITUS [None]
  - DRUG DEPENDENCE [None]
  - ENDOMETRIOSIS [None]
  - FLANK PAIN [None]
  - GASTRIC VARICES HAEMORRHAGE [None]
  - GASTROINTESTINAL DISORDER [None]
  - HAEMORRHOIDS [None]
  - HEPATIC CIRRHOSIS [None]
  - HYPOAESTHESIA [None]
  - INFLAMMATORY BOWEL DISEASE [None]
  - INTESTINAL HAEMORRHAGE [None]
  - IRRITABLE BOWEL SYNDROME [None]
  - LEUKOCYTOCLASTIC VASCULITIS [None]
  - LOWER EXTREMITY MASS [None]
  - MIGRAINE [None]
  - MULTI-ORGAN DISORDER [None]
  - NEPHROLITHIASIS [None]
  - OBSESSIVE-COMPULSIVE DISORDER [None]
  - OVARIAN CYST RUPTURED [None]
  - PANCYTOPENIA [None]
  - PELVIC INFLAMMATORY DISEASE [None]
  - PERIRECTAL ABSCESS [None]
  - PILONIDAL CYST [None]
  - PNEUMONIA [None]
  - PNEUMONITIS [None]
  - PORTAL HYPERTENSIVE GASTROPATHY [None]
  - PRECANCEROUS CELLS PRESENT [None]
  - PYELONEPHRITIS [None]
  - RAYNAUD'S PHENOMENON [None]
  - RENAL DISORDER [None]
  - RENAL FAILURE [None]
  - SJOGREN'S SYNDROME [None]
  - SKIN ULCER [None]
  - SPINA BIFIDA OCCULTA [None]
  - STAPHYLOCOCCAL INFECTION [None]
  - SYSTEMIC LUPUS ERYTHEMATOSUS [None]
  - THROMBOCYTOPENIA [None]
  - THROMBOSIS [None]
  - TIBIA FRACTURE [None]
  - UMBILICAL HERNIA [None]
  - URINARY TRACT INFECTION [None]
  - UTERINE CANCER [None]
  - WOUND INFECTION FUNGAL [None]
